FAERS Safety Report 24169293 (Version 1)
Quarter: 2024Q3

REPORT INFORMATION
  Report Type: Spontaneous
  Country: IN (occurrence: IN)
  Receive Date: 20240802
  Receipt Date: 20240802
  Transmission Date: 20241016
  Serious: Yes (Hospitalization, Other)
  Sender: ABBVIE
  Company Number: IN-PFIZER INC-202400225744

PATIENT
  Age: 18 Year
  Sex: Female

DRUGS (2)
  1. AVIBACTAM SODIUM\CEFTAZIDIME [Suspect]
     Active Substance: AVIBACTAM SODIUM\CEFTAZIDIME
     Indication: Product used for unknown indication
     Dosage: UNK
     Route: 065
     Dates: start: 20240726
  2. AZTREONAM [Suspect]
     Active Substance: AZTREONAM
     Indication: Product used for unknown indication
     Dosage: UNK
     Route: 065
     Dates: start: 20240726

REACTIONS (2)
  - Hepatic function abnormal [Unknown]
  - Blood bilirubin increased [Unknown]

NARRATIVE: CASE EVENT DATE: 20240729
